FAERS Safety Report 11439172 (Version 1)
Quarter: 2015Q3

REPORT INFORMATION
  Report Type: Spontaneous
  Country: US (occurrence: US)
  Receive Date: 20150901
  Receipt Date: 20150901
  Transmission Date: 20151125
  Serious: No
  Sender: FDA-Public Use
  Company Number: US-ROCHE-1040300

PATIENT
  Sex: Female

DRUGS (5)
  1. PEGASYS [Suspect]
     Active Substance: PEGINTERFERON ALFA-2A
     Indication: CHRONIC HEPATITIS C
     Route: 058
     Dates: start: 20120409
  2. RIBAVIRIN. [Suspect]
     Active Substance: RIBAVIRIN
     Route: 065
     Dates: start: 201208
  3. RIBAVIRIN. [Suspect]
     Active Substance: RIBAVIRIN
     Route: 048
     Dates: start: 20120409
  4. PEGASYS [Suspect]
     Active Substance: PEGINTERFERON ALFA-2A
     Route: 058
     Dates: start: 20120409
  5. RIBAVIRIN. [Suspect]
     Active Substance: RIBAVIRIN
     Indication: CHRONIC HEPATITIS C
     Route: 065
     Dates: start: 20120130

REACTIONS (15)
  - Dysphagia [Unknown]
  - Food intolerance [Unknown]
  - Dry skin [Unknown]
  - Anaemia [Unknown]
  - Depression [Unknown]
  - Impaired healing [Unknown]
  - Headache [Unknown]
  - Loss of consciousness [Unknown]
  - Nausea [Unknown]
  - Haemoglobin decreased [Unknown]
  - Chest pain [Unknown]
  - Dyspnoea [Unknown]
  - Alopecia [Unknown]
  - Chest discomfort [Unknown]
  - Angina pectoris [Unknown]
